FAERS Safety Report 7802294 (Version 2)
Quarter: 2015Q2

REPORT INFORMATION
  Report Type: Report from Study
  Country: CH (occurrence: CH)
  Receive Date: 20110207
  Receipt Date: 20150416
  Transmission Date: 20150821
  Serious: Yes (Death)
  Sender: FDA-Public Use
  Company Number: CH-ASTRAZENECA-2011SE05652

PATIENT
  Age: 78 Year
  Sex: Female
  Weight: 70 kg

DRUGS (12)
  1. NEXIUM [Suspect]
     Active Substance: ESOMEPRAZOLE MAGNESIUM
     Route: 048
     Dates: start: 201101
  2. CALCIMAGON [Concomitant]
     Active Substance: CALCIUM
     Route: 048
  3. LODINE [Interacting]
     Active Substance: ETODOLAC
     Route: 048
     Dates: start: 201101
  4. CARDAXEN [Concomitant]
     Route: 048
  5. SPIRICORT [Interacting]
     Active Substance: PREDNISOLONE
     Route: 048
     Dates: start: 201101
  6. NOVALGIN [Suspect]
     Active Substance: METAMIZOLE SODIUM
     Indication: PAIN
     Route: 048
     Dates: start: 201012, end: 20110108
  7. DEANXIT [Concomitant]
     Active Substance: FLUPENTIXOL DIHYDROCHLORIDE\MELITRACEN HYDROCHLORIDE
     Route: 048
  8. MST CONTINUS [Concomitant]
     Active Substance: MORPHINE SULFATE
     Route: 048
  9. IMPORTAL [Concomitant]
     Active Substance: LACTITOL
     Route: 048
  10. METHOTREXATE (METHOTREXATE SODIUM) [Interacting]
     Active Substance: METHOTREXATE SODIUM
     Indication: RHEUMATOID ARTHRITIS
     Dosage: 10 MG ONCE A WEEK, NONAZ PRODUCT
     Route: 048
     Dates: start: 20110108
  11. ALENDRON MEPHA [Suspect]
     Active Substance: ALENDRONATE SODIUM
     Route: 048
     Dates: start: 201101
  12. MOTILIUM [Concomitant]
     Active Substance: DOMPERIDONE
     Route: 048

REACTIONS (8)
  - Sepsis [Fatal]
  - Oesophageal candidiasis [Fatal]
  - Drug interaction [Fatal]
  - Pneumonia [Fatal]
  - Cholecystitis [Fatal]
  - Gastrointestinal haemorrhage [Fatal]
  - Pancytopenia [Fatal]
  - Colitis [Fatal]

NARRATIVE: CASE EVENT DATE: 201101
